FAERS Safety Report 5392555-8 (Version None)
Quarter: 2007Q3

REPORT INFORMATION
  Report Type: 
  Country: None (occurrence: None)
  Receive Date: 20070720
  Receipt Date: 20070718
  Transmission Date: 20080115
  Serious: Yes (Hospitalization)
  Sender: FDA-Public Use
  Company Number: ES-BOEHRINGER INGELHEIM PHARMACEUTICALS, INC.-2007-ES-00102ES

PATIENT
  Sex: Male
  Weight: 85 kg

DRUGS (4)
  1. APTIVUS [Suspect]
     Indication: HIV INFECTION
     Dosage: 500 MG TIPRANAVIR + 200 MG RITONAVIR
     Route: 048
     Dates: start: 20060519, end: 20060604
  2. TENOFOVIR [Concomitant]
     Indication: HIV INFECTION
     Route: 048
     Dates: start: 20060519, end: 20060604
  3. STAVUDINE [Concomitant]
     Indication: HIV INFECTION
     Route: 048
     Dates: start: 20060519, end: 20060604
  4. FUZEON [Concomitant]
     Indication: HIV INFECTION
     Route: 058
     Dates: start: 20060519, end: 20060604

REACTIONS (4)
  - BICYTOPENIA [None]
  - HEPATITIS CHOLESTATIC [None]
  - PORTAL HYPERTENSION [None]
  - SPLENOMEGALY [None]
